FAERS Safety Report 8224135-0 (Version None)
Quarter: 2012Q1

REPORT INFORMATION
  Report Type: 
  Country: None (occurrence: None)
  Receive Date: 20120321
  Receipt Date: 20120319
  Transmission Date: 20120608
  Serious: No
  Sender: FDA-Public Use
  Company Number: US-PFIZER INC-2012071385

PATIENT
  Sex: Female
  Weight: 59 kg

DRUGS (3)
  1. PRISTIQ [Suspect]
     Indication: DEPRESSION
     Dosage: 50 MG, 2X/DAY
     Route: 048
     Dates: start: 20120301, end: 20120316
  2. EFFEXOR [Concomitant]
     Dosage: UNK
  3. GEODON [Concomitant]
     Dosage: UNK

REACTIONS (3)
  - DRUG ADMINISTRATION ERROR [None]
  - DRUG PRESCRIBING ERROR [None]
  - MALAISE [None]
